FAERS Safety Report 10751524 (Version 1)
Quarter: 2015Q1

REPORT INFORMATION
  Report Type: Spontaneous
  Country: US (occurrence: US)
  Receive Date: 20150130
  Receipt Date: 20150130
  Transmission Date: 20150721
  Serious: Yes (Other)
  Sender: FDA-Public Use
  Company Number: US-BAYER-2015-011924

PATIENT
  Sex: Female

DRUGS (1)
  1. MIRENA [Suspect]
     Active Substance: LEVONORGESTREL
     Indication: ENDOMETRIAL DISORDER
     Dosage: 20 MCG/24HR, CONT
     Route: 015
     Dates: start: 201211, end: 201212

REACTIONS (2)
  - Product use issue [None]
  - Infertility female [None]

NARRATIVE: CASE EVENT DATE: 201212
